FAERS Safety Report 8613105-6 (Version None)
Quarter: 2012Q3

REPORT INFORMATION
  Report Type: 
  Country: None (occurrence: None)
  Receive Date: 20120822
  Receipt Date: 20120727
  Transmission Date: 20120928
  Serious: Yes (Other)
  Sender: FDA-Public Use
  Company Number: JP-009507513-1208JPN001979

PATIENT

DRUGS (10)
  1. TELAVIC [Suspect]
     Indication: HEPATITIS C
     Route: 048
     Dates: start: 20120619, end: 20120622
  2. PEG-INTRON [Suspect]
     Indication: HEPATITIS C
     Dosage: 1.5MCG/KG/WEEK
     Route: 058
     Dates: start: 20120619, end: 20120622
  3. REBETOL [Suspect]
     Indication: HEPATITIS C
     Route: 048
     Dates: start: 20120619, end: 20120622
  4. REBETOL [Suspect]
     Route: 048
     Dates: start: 20120710
  5. REBETOL [Suspect]
     Dosage: DOSAGE IS UNCERTAIN DURING A DAY.
     Route: 048
     Dates: start: 20120626
  6. ALLOPURINOL [Concomitant]
     Dosage: DOSAGE IS UNCERTAIN DURING A DAY.
     Route: 048
  7. PEG-INTRON [Suspect]
     Dosage: DOSAGE IS UNCERTAIN DURING A DAY.
     Route: 058
     Dates: start: 20120626
  8. TELAVIC [Suspect]
     Dosage: DOSAGE IS UNCERTAIN DURING A DAY.
     Route: 048
     Dates: start: 20120626
  9. URSO 250 [Concomitant]
     Indication: HEPATITIS C
     Route: 048
  10. REBETOL [Suspect]
     Route: 048
     Dates: start: 20120626, end: 20120710

REACTIONS (2)
  - RENAL IMPAIRMENT [None]
  - RENAL DISORDER [None]
